FAERS Safety Report 10018542 (Version 2)
Quarter: 2014Q1

REPORT INFORMATION
  Report Type: Report from Study
  Country: US (occurrence: US)
  Receive Date: 20140318
  Receipt Date: 20140318
  Transmission Date: 20141002
  Serious: Yes (Hospitalization)
  Sender: FDA-Public Use
  Company Number: US-ELI_LILLY_AND_COMPANY-US201401006412

PATIENT
  Age: 81 Year
  Sex: Male

DRUGS (10)
  1. MYOSTATIN ANTIBODY (LA424) LY2495655 IV [Suspect]
     Indication: MUSCLE ATROPHY
     Dosage: 300 MG, CYCLICAL
     Route: 042
     Dates: start: 20121129, end: 20140123
  2. MYOSTATIN ANTIBODY (LA424) LY2495655 IV [Suspect]
     Dosage: UNK
     Route: 042
     Dates: start: 20140130
  3. GEMCITABINE HYDROCHLORIDE [Suspect]
     Indication: MUSCLE ATROPHY
     Dosage: UNK UNK, CYCLICAL
     Route: 042
     Dates: start: 20121129
  4. GEMCITABINE HYDROCHLORIDE [Suspect]
     Dosage: 500 MG/M2, CYCLICAL
     Route: 042
     Dates: start: 20131114, end: 20140102
  5. GEMCITABINE HYDROCHLORIDE [Suspect]
     Dosage: 375 MG/M2, CYCLICAL
     Route: 042
     Dates: start: 20140109, end: 20140123
  6. GEMCITABINE HYDROCHLORIDE [Suspect]
     Dosage: 375 MG/M2, CYCLICAL
     Route: 042
     Dates: start: 20140130
  7. ASPIRIN [Concomitant]
     Dosage: 325 MG, QD
     Route: 048
  8. CITALOPRAM [Concomitant]
     Dosage: 40 MG, QD
     Route: 048
  9. OMEPRAZOLE [Concomitant]
     Dosage: 20 MG, QD
     Route: 048
  10. SIMVASTATIN [Concomitant]
     Dosage: 80 MG, QD
     Route: 048

REACTIONS (1)
  - Sepsis [Recovered/Resolved]
